FAERS Safety Report 5981859-3 (Version None)
Quarter: 2008Q4

REPORT INFORMATION
  Report Type: 
  Country: None (occurrence: None)
  Receive Date: 20081202
  Receipt Date: 20081118
  Transmission Date: 20090506
  Serious: Yes (Other)
  Sender: FDA-Public Use
  Company Number: CHPA2008US20367

PATIENT
  Age: 27 Year
  Sex: Female
  Weight: 79.4 kg

DRUGS (2)
  1. THERAFLU FLU AND SORE THROAT (NCH) (PARACETAMOL, DIPHENHYDRAMINE, PHEN [Suspect]
     Indication: INFLUENZA
     Dosage: 2 TSP, ONCE/SINGLE, ORAL
     Route: 048
     Dates: start: 20081118, end: 20081118
  2. THERAFLU FLU AND SORE THROAT (NCH) (PARACETAMOL, DIPHENHYDRAMINE, PHEN [Suspect]
     Indication: NASOPHARYNGITIS
     Dosage: 2 TSP, ONCE/SINGLE, ORAL
     Route: 048
     Dates: start: 20081118, end: 20081118

REACTIONS (2)
  - LOSS OF CONSCIOUSNESS [None]
  - SOMNAMBULISM [None]
